FAERS Safety Report 23482229 (Version 1)
Quarter: 2024Q1

REPORT INFORMATION
  Report Type: Spontaneous
  Country: CN (occurrence: CN)
  Receive Date: 20240205
  Receipt Date: 20240205
  Transmission Date: 20240410
  Serious: Yes (Hospitalization)
  Sender: FDA-Public Use
  Company Number: CN-BAYER-2024A019683

PATIENT
  Age: 56 Year
  Sex: Male
  Weight: 60 kg

DRUGS (4)
  1. STIVARGA [Suspect]
     Active Substance: REGORAFENIB
     Indication: Neoplasm malignant
     Dosage: 80 MG, QD
     Route: 048
     Dates: start: 20240103, end: 20240123
  2. STIVARGA [Suspect]
     Active Substance: REGORAFENIB
     Indication: Immunochemotherapy
  3. TISLELIZUMAB [Concomitant]
     Active Substance: TISLELIZUMAB
     Indication: Neoplasm malignant
     Dosage: 200 MG, QD
     Route: 041
     Dates: start: 20240103, end: 20240103
  4. TISLELIZUMAB [Concomitant]
     Active Substance: TISLELIZUMAB
     Indication: Immunochemotherapy

REACTIONS (4)
  - Protein urine present [Unknown]
  - Hypoproteinaemia [Unknown]
  - Urine output decreased [None]
  - Off label use [None]

NARRATIVE: CASE EVENT DATE: 20240103
